FAERS Safety Report 8849575 (Version 1)
Quarter: 2012Q4

REPORT INFORMATION
  Report Type: Spontaneous
  Country: US (occurrence: None)
  Receive Date: 20121018
  Receipt Date: 20121018
  Transmission Date: 20130627
  Serious: No
  Sender: FDA-Public Use
  Company Number: None

PATIENT
  Age: 47 Year
  Sex: Female
  Weight: 50.8 kg

DRUGS (1)
  1. CLINDAMYCIN [Suspect]
     Indication: ORAL INFECTION
     Route: 048
     Dates: start: 20121012, end: 20121014

REACTIONS (4)
  - Chest pain [None]
  - Sensation of foreign body [None]
  - Back pain [None]
  - Odynophagia [None]
